FAERS Safety Report 12238735 (Version 1)
Quarter: 2016Q2

REPORT INFORMATION
  Report Type: Spontaneous
  Country: US (occurrence: None)
  Receive Date: 20160404
  Receipt Date: 20160404
  Transmission Date: 20160815
  Serious: Yes (Hospitalization)
  Sender: FDA-Public Use
  Company Number: None

PATIENT
  Age: 25 Year
  Sex: Female
  Weight: 108 kg

DRUGS (20)
  1. LIORESAL [Concomitant]
     Active Substance: BACLOFEN
  2. ZYPREXA [Concomitant]
     Active Substance: OLANZAPINE
  3. SYMBICORT [Concomitant]
     Active Substance: BUDESONIDE\FORMOTEROL FUMARATE DIHYDRATE
  4. LORATADINE (CLARITIN) [Concomitant]
  5. METHYPHENIDATE ER (CONCERTA) [Concomitant]
  6. CLONAZEPAM (KLONOPIN) [Concomitant]
  7. TOPAMAX [Concomitant]
     Active Substance: TOPIRAMATE
  8. SINGULAIR [Concomitant]
     Active Substance: MONTELUKAST SODIUM
  9. COUMADIN [Concomitant]
     Active Substance: WARFARIN SODIUM
  10. DEPO-PROVERA [Suspect]
     Active Substance: MEDROXYPROGESTERONE ACETATE
     Route: 030
  11. ALBUTEROL (VENTOLIN) [Concomitant]
  12. ACETAMINOPEHN-CODEINE (TYLENOL NO. 3) [Concomitant]
  13. ALBUTEROL 108 (90 BASE) MCG/ACT INHALER [Concomitant]
  14. B COMPLEX VITAMINS (B COMPLEX 50) [Concomitant]
  15. NECON [Suspect]
     Active Substance: ETHINYL ESTRADIOL\NORETHINDRONE
     Indication: MENORRHAGIA
     Route: 048
  16. METHYLPHENIDATE (RITALIN) [Concomitant]
  17. PANTOPRAZOLE (PROTONIX) [Concomitant]
  18. FLAXSEED, LINSEED (GROUND FLAX SEEDS) [Concomitant]
  19. OLOPATADINE HCL (PATADAY) [Concomitant]
  20. EPINEPHRINE (EPIPEN) [Concomitant]

REACTIONS (10)
  - Headache [None]
  - Vomiting [None]
  - Cough [None]
  - Dyspnoea [None]
  - Dyspnoea exertional [None]
  - Abdominal pain upper [None]
  - Haemoptysis [None]
  - Chest pain [None]
  - Deep vein thrombosis [None]
  - Nausea [None]

NARRATIVE: CASE EVENT DATE: 20160120
